FAERS Safety Report 5311101-8 (Version None)
Quarter: 2007Q2

REPORT INFORMATION
  Report Type: 
  Country: None (occurrence: None)
  Receive Date: 20070427
  Receipt Date: 20070427
  Transmission Date: 20071010
  Serious: Yes (Other)
  Sender: FDA-Public Use
  Company Number: None

PATIENT
  Sex: Male
  Weight: 35.8342 kg

DRUGS (2)
  1. TOPAMAX [Suspect]
     Indication: CONVULSION
     Dosage: 25 MG 1 BID PO
     Route: 048
     Dates: start: 20060901
  2. TOPAMAX [Suspect]
     Indication: CONVULSION
     Dosage: 25 MG 1 BID PO
     Route: 048
     Dates: start: 20070301

REACTIONS (1)
  - RASH PAPULAR [None]
